FAERS Safety Report 7245334-0 (Version None)
Quarter: 2011Q1

REPORT INFORMATION
  Report Type: 
  Country: None (occurrence: None)
  Receive Date: 20110126
  Receipt Date: 20110118
  Transmission Date: 20110831
  Serious: Yes (Hospitalization)
  Sender: FDA-Public Use
  Company Number: FR-ROCHE-754380

PATIENT
  Sex: Male

DRUGS (11)
  1. VASTAREL [Concomitant]
  2. ELISOR [Concomitant]
  3. IRINOTECAN [Suspect]
     Dosage: LAST DOSE: 23 DEC 2010
     Route: 042
     Dates: start: 20101223
  4. AMLOR [Concomitant]
  5. TENORMIN [Concomitant]
  6. ZOPHREN [Concomitant]
  7. TOMUDEX [Suspect]
     Dosage: LAST DOSE: 23 DEC 2010
     Route: 042
     Dates: start: 20101223
  8. KARDEGIC [Concomitant]
  9. AVASTIN [Suspect]
     Dosage: LAST DOSE: 23 DEC 2010
     Route: 042
     Dates: start: 20100813
  10. MOPRAL [Concomitant]
  11. ATROPINE [Concomitant]

REACTIONS (3)
  - STOMATITIS [None]
  - DIARRHOEA [None]
  - FEBRILE BONE MARROW APLASIA [None]
